FAERS Safety Report 12647304 (Version 1)
Quarter: 2016Q3

REPORT INFORMATION
  Report Type: Spontaneous
  Country: JP (occurrence: JP)
  Receive Date: 20160812
  Receipt Date: 20160812
  Transmission Date: 20161109
  Serious: Yes (Other)
  Sender: FDA-Public Use
  Company Number: JP-009507513-1607JPN005657

PATIENT

DRUGS (2)
  1. REBETOL [Suspect]
     Active Substance: RIBAVIRIN
     Indication: CHRONIC HEPATITIS C
     Dosage: 15 MG/KG, QD
     Route: 048
  2. PEGINTRON [Suspect]
     Active Substance: PEGINTERFERON ALFA-2B
     Indication: CHRONIC HEPATITIS C
     Dosage: 1.5 MICROGRAM PER KILOGRAM, QW
     Route: 065

REACTIONS (10)
  - Blood thyroid stimulating hormone increased [Unknown]
  - Lethargy [Unknown]
  - Anaemia [Unknown]
  - Leukopenia [Unknown]
  - Hypothyroidism [Unknown]
  - Alopecia [Unknown]
  - Rash [Unknown]
  - Depression [Unknown]
  - Mean cell haemoglobin decreased [Recovered/Resolved]
  - Treatment failure [Unknown]
